FAERS Safety Report 22039542 (Version 1)
Quarter: 2023Q1

REPORT INFORMATION
  Report Type: Spontaneous
  Country: US (occurrence: None)
  Receive Date: 20230223
  Receipt Date: 20230223
  Transmission Date: 20230417
  Serious: Yes (Hospitalization)
  Sender: FDA-Public Use
  Company Number: None

PATIENT
  Sex: Male

DRUGS (1)
  1. XELJANZ [Suspect]
     Active Substance: TOFACITINIB CITRATE
     Indication: Colitis ulcerative
     Dosage: 5 MG TWICE DAILY BY MOUTH
     Route: 048
     Dates: start: 202106

REACTIONS (3)
  - Insurance issue [None]
  - Colitis ulcerative [None]
  - Therapy interrupted [None]
